FAERS Safety Report 18740767 (Version 2)
Quarter: 2021Q1

REPORT INFORMATION
  Report Type: Spontaneous
  Country: US (occurrence: US)
  Receive Date: 20210114
  Receipt Date: 20210215
  Transmission Date: 20210419
  Serious: No
  Sender: FDA-Public Use
  Company Number: US-PFIZER INC-2019261220

PATIENT
  Age: 63 Year
  Sex: Female

DRUGS (6)
  1. CELEBREX [Suspect]
     Active Substance: CELECOXIB
     Indication: TREMOR
  2. CELEBREX [Suspect]
     Active Substance: CELECOXIB
     Indication: SCIATICA
  3. CELEBREX [Suspect]
     Active Substance: CELECOXIB
     Indication: MUSCLE SPASMS
  4. CELEBREX [Suspect]
     Active Substance: CELECOXIB
     Indication: NEURALGIA
  5. CELEBREX [Suspect]
     Active Substance: CELECOXIB
     Indication: ARTHRALGIA
  6. CELEBREX [Suspect]
     Active Substance: CELECOXIB
     Indication: RAYNAUD^S PHENOMENON
     Dosage: 200 MG, 2X/DAY

REACTIONS (2)
  - Off label use [Unknown]
  - Memory impairment [Unknown]
